FAERS Safety Report 15119774 (Version 1)
Quarter: 2018Q3

REPORT INFORMATION
  Report Type: Spontaneous
  Country: DE (occurrence: DE)
  Receive Date: 20180709
  Receipt Date: 20180709
  Transmission Date: 20181010
  Serious: Yes (Life-Threatening)
  Sender: FDA-Public Use
  Company Number: PHHY1998DE002149

PATIENT
  Age: 83 Year
  Sex: Female
  Weight: 71 kg

DRUGS (25)
  1. ASPIRIN. [Suspect]
     Active Substance: ASPIRIN
     Indication: THROMBOSIS PROPHYLAXIS
     Dosage: 100 MG, QD
     Route: 048
  2. OFLOXACIN. [Suspect]
     Active Substance: OFLOXACIN
     Dosage: UNK
     Route: 048
     Dates: start: 19950923
  3. ISOSORBIDE MONONITRATE. [Concomitant]
     Active Substance: ISOSORBIDE MONONITRATE
     Dosage: 20 MG, QD
     Route: 048
     Dates: start: 19950923
  4. PEPDUL [Concomitant]
     Indication: PROPHYLAXIS
     Dosage: 1 DF (UG/LITRE), QD
     Route: 048
  5. ADALAT T [Suspect]
     Active Substance: NIFEDIPINE
     Dosage: UNK
     Route: 048
     Dates: start: 19950914
  6. ISOSORBIDE MONONITRATE. [Concomitant]
     Active Substance: ISOSORBIDE MONONITRATE
     Indication: CORONARY ARTERY DISEASE
     Dosage: 20 MG, QD
     Route: 048
  7. BAYMYCARD [Concomitant]
     Active Substance: NISOLDIPINE
     Indication: CARDIAC FAILURE
     Dosage: UNK
     Route: 065
  8. HEPARIN [Suspect]
     Active Substance: HEPARIN SODIUM
     Indication: THROMBOSIS PROPHYLAXIS
     Dosage: UNK
     Route: 058
     Dates: start: 19950913
  9. DIPIDOLOR [Suspect]
     Active Substance: PIRITRAMIDE
     Dosage: UNK
     Route: 042
     Dates: start: 19950909
  10. FAVISTAN (THIAMAZOLE) [Suspect]
     Active Substance: METHIMAZOLE
     Indication: THYROID DISORDER
     Dosage: UNK
     Route: 042
     Dates: start: 19950916
  11. IRENAT [Suspect]
     Active Substance: SODIUM PERCHLORATE
     Indication: THYROID DISORDER
     Dosage: UNK
     Route: 048
     Dates: start: 19950907
  12. BACTRIM [Suspect]
     Active Substance: SULFAMETHOXAZOLE\TRIMETHOPRIM
     Dosage: UNK
     Route: 048
     Dates: start: 19950915
  13. NITRO [Concomitant]
     Active Substance: NITROGLYCERIN
     Indication: ANGIOGRAM
     Dosage: 2 DF (UG/LITRE), UNK
     Route: 055
     Dates: start: 19950907
  14. PASPERTIN [METOCLOPRAMIDE HYDROCHLORIDE] [Suspect]
     Active Substance: METOCLOPRAMIDE HYDROCHLORIDE
     Indication: VOMITING
     Dosage: UNK
     Route: 048
     Dates: start: 19950909
  15. DIPIDOLOR [Suspect]
     Active Substance: PIRITRAMIDE
     Indication: PAIN
     Dosage: UNK
     Route: 042
     Dates: start: 19950908
  16. LEXOTANIL [Suspect]
     Active Substance: BROMAZEPAM
     Dosage: UNK
     Route: 048
     Dates: start: 19950912
  17. PASPERTIN [METOCLOPRAMIDE HYDROCHLORIDE] [Suspect]
     Active Substance: METOCLOPRAMIDE HYDROCHLORIDE
     Dosage: UNK
     Route: 048
     Dates: start: 19950923
  18. LEXOTANIL [Suspect]
     Active Substance: BROMAZEPAM
     Indication: SEDATION
     Dosage: UNK
     Route: 048
     Dates: start: 19950907
  19. IRENAT [Suspect]
     Active Substance: SODIUM PERCHLORATE
     Dosage: UNK
     Route: 048
     Dates: start: 19950916
  20. ADALAT T [Suspect]
     Active Substance: NIFEDIPINE
     Indication: CARDIAC FAILURE
     Dosage: UNK
     Route: 048
     Dates: start: 19950907
  21. OFLOXACIN. [Suspect]
     Active Substance: OFLOXACIN
     Indication: URINARY TRACT INFECTION
     Dosage: UNK
     Route: 048
     Dates: start: 19950917
  22. HEPARIN [Suspect]
     Active Substance: HEPARIN SODIUM
     Dosage: UNK
     Route: 058
     Dates: start: 19950922
  23. FAVISTAN (THIAMAZOLE) [Suspect]
     Active Substance: METHIMAZOLE
     Dosage: UNK
     Route: 042
     Dates: start: 19950917
  24. METAMIZOLE [Suspect]
     Active Substance: METAMIZOLE
     Indication: PAIN
     Dosage: UNK
     Route: 048
     Dates: start: 19950908
  25. BACTRIM [Suspect]
     Active Substance: SULFAMETHOXAZOLE\TRIMETHOPRIM
     Indication: URINARY TRACT INFECTION
     Dosage: UNK
     Route: 048
     Dates: start: 19950913

REACTIONS (6)
  - Pain [Unknown]
  - Mucosal erosion [Recovering/Resolving]
  - Rash [Recovering/Resolving]
  - Conjunctivitis [Recovering/Resolving]
  - Stevens-Johnson syndrome [Recovering/Resolving]
  - Toxic epidermal necrolysis [Recovering/Resolving]

NARRATIVE: CASE EVENT DATE: 19950922
